FAERS Safety Report 4443261-5 (Version None)
Quarter: 2004Q3

REPORT INFORMATION
  Report Type: 
  Country: None (occurrence: None)
  Receive Date: 20040728
  Receipt Date: 20040513
  Transmission Date: 20050211
  Serious: No
  Sender: FDA-Public Use
  Company Number: USA040567486

PATIENT
  Sex: Female

DRUGS (4)
  1. STRATTERA [Suspect]
     Indication: DISTURBANCE IN ATTENTION
     Dates: start: 20040512
  2. LEVBID (HYOSCYAMINE SULFATE) [Concomitant]
  3. ACIPHEX [Concomitant]
  4. PROZAC [Concomitant]

REACTIONS (3)
  - FORMICATION [None]
  - PILOERECTION [None]
  - PSYCHOMOTOR HYPERACTIVITY [None]
